FAERS Safety Report 23431263 (Version 2)
Quarter: 2024Q2

REPORT INFORMATION
  Report Type: Spontaneous
  Country: CA (occurrence: CA)
  Receive Date: 20240123
  Receipt Date: 20240521
  Transmission Date: 20240716
  Serious: No
  Sender: FDA-Public Use
  Company Number: CA-SA-SAC20240118001209

PATIENT
  Age: 37 Year
  Sex: Female
  Weight: 104 kg

DRUGS (2)
  1. ADMELOG [Suspect]
     Active Substance: INSULIN LISPRO
     Indication: Diabetes mellitus
     Dosage: 20-30 U TID
     Route: 058
     Dates: start: 20230503, end: 20230518
  2. INSULIN GLARGINE [Suspect]
     Active Substance: INSULIN GLARGINE
     Indication: Diabetes mellitus
     Dosage: 80 IU QD
     Route: 058
     Dates: start: 20230503, end: 20230518

REACTIONS (2)
  - Diarrhoea [Recovered/Resolved]
  - Vomiting [Recovered/Resolved]

NARRATIVE: CASE EVENT DATE: 20230501
